FAERS Safety Report 10200293 (Version 2)
Quarter: 2014Q2

REPORT INFORMATION
  Report Type: Spontaneous
  Country: GB (occurrence: GB)
  Receive Date: 20140527
  Receipt Date: 20140604
  Transmission Date: 20141212
  Serious: Yes (Hospitalization)
  Sender: FDA-Public Use
  Company Number: GB-TEVA-482630ISR

PATIENT
  Age: 93 Year
  Sex: Male

DRUGS (3)
  1. BISOPROLOL [Suspect]
  2. DIAZEPAM [Suspect]
  3. CLOZARIL [Suspect]
     Route: 048
     Dates: start: 20140503

REACTIONS (3)
  - Miosis [Unknown]
  - Medication error [Unknown]
  - Unresponsive to stimuli [Unknown]
